FAERS Safety Report 4738268-4 (Version None)
Quarter: 2005Q3

REPORT INFORMATION
  Report Type: 
  Country: None (occurrence: None)
  Receive Date: 20050809
  Receipt Date: 20050714
  Transmission Date: 20060218
  Serious: Yes (Death, Hospitalization)
  Sender: FDA-Public Use
  Company Number: PHBS2005JP10096

PATIENT
  Age: 84 Year
  Sex: Male

DRUGS (7)
  1. LOCHOL [Suspect]
     Indication: HYPERCHOLESTEROLAEMIA
     Dosage: 60 MG/DAY
     Route: 048
     Dates: start: 20050415, end: 20050710
  2. LOXONIN [Concomitant]
     Indication: NEURALGIA
     Dosage: 180 MG/DAY
     Route: 048
     Dates: start: 20050530, end: 20050710
  3. BASEN [Concomitant]
     Indication: DIABETES MELLITUS
     Dosage: 0.6 MG, UNK
     Route: 048
     Dates: start: 20050530, end: 20050710
  4. ANPLAG [Concomitant]
     Indication: PERIPHERAL OCCLUSIVE DISEASE
     Dosage: 300 MG, UNK
     Route: 048
     Dates: start: 20050223, end: 20050710
  5. SELBEX [Concomitant]
     Indication: PROPHYLAXIS AGAINST GASTROINTESTINAL ULCER
     Dosage: 1.5 G/DAY
     Route: 048
     Dates: start: 20050201, end: 20050710
  6. MELBIN [Concomitant]
     Indication: DIABETES MELLITUS
     Dosage: 500 MG/DAY
     Route: 048
     Dates: start: 20050530, end: 20050710
  7. KINEDAK [Concomitant]
     Indication: DIABETES MELLITUS
     Dosage: 150 MG/DAY
     Route: 048
     Dates: start: 20050201, end: 20050710

REACTIONS (16)
  - ALANINE AMINOTRANSFERASE INCREASED [None]
  - ASPARTATE AMINOTRANSFERASE INCREASED [None]
  - BLOOD CREATINE PHOSPHOKINASE INCREASED [None]
  - BLOOD CREATININE INCREASED [None]
  - BLOOD LACTATE DEHYDROGENASE INCREASED [None]
  - BLOOD UREA INCREASED [None]
  - C-REACTIVE PROTEIN INCREASED [None]
  - DEPRESSED LEVEL OF CONSCIOUSNESS [None]
  - DRUG INEFFECTIVE [None]
  - MYALGIA [None]
  - MYOGLOBIN BLOOD INCREASED [None]
  - RENAL FAILURE ACUTE [None]
  - RHABDOMYOLYSIS [None]
  - SHOCK [None]
  - STREPTOCOCCAL INFECTION [None]
  - WHITE BLOOD CELL COUNT INCREASED [None]
